FAERS Safety Report 7400617-6 (Version None)
Quarter: 2011Q2

REPORT INFORMATION
  Report Type: 
  Country: None (occurrence: None)
  Receive Date: 20110407
  Receipt Date: 20110324
  Transmission Date: 20111010
  Serious: Yes (Other)
  Sender: FDA-Public Use
  Company Number: CA-JNJFOC-20100702565

PATIENT
  Sex: Male
  Weight: 69 kg

DRUGS (8)
  1. EYE DROP MEDICATIONS [Concomitant]
  2. TEMAZEPAM [Concomitant]
  3. REMICADE [Suspect]
     Dosage: 5 MG/KG
     Route: 042
  4. APO-KETO [Concomitant]
  5. ACETAMINOPHEN [Concomitant]
  6. REMICADE [Suspect]
     Indication: ANKYLOSING SPONDYLITIS
     Dosage: 5 MG/KG
     Route: 042
  7. REMICADE [Suspect]
     Route: 042
  8. ARTIFICIAL TEARS NOS [Concomitant]

REACTIONS (1)
  - EYE DISORDER [None]
